FAERS Safety Report 25416519 (Version 1)
Quarter: 2025Q2

REPORT INFORMATION
  Report Type: Spontaneous
  Country: US (occurrence: US)
  Receive Date: 20250610
  Receipt Date: 20250610
  Transmission Date: 20250717
  Serious: No
  Sender: ABBVIE
  Company Number: US-ABBVIE-6319281

PATIENT
  Sex: Female

DRUGS (2)
  1. ELAGOLIX [Suspect]
     Active Substance: ELAGOLIX
     Indication: Product used for unknown indication
     Route: 048
     Dates: start: 2023, end: 2024
  2. ELAGOLIX [Suspect]
     Active Substance: ELAGOLIX
     Indication: Product used for unknown indication
     Route: 048
     Dates: start: 2025

REACTIONS (3)
  - General symptom [Unknown]
  - Bone density decreased [Unknown]
  - Amenorrhoea [Unknown]

NARRATIVE: CASE EVENT DATE: 20250101
